FAERS Safety Report 14330389 (Version 1)
Quarter: 2017Q4

REPORT INFORMATION
  Report Type: Spontaneous
  Country: US (occurrence: US)
  Receive Date: 20171227
  Receipt Date: 20171227
  Transmission Date: 20180321
  Serious: No
  Sender: FDA-Public Use
  Company Number: US-009507513-1712USA004058

PATIENT
  Sex: Female

DRUGS (4)
  1. ALPRAZOLAM. [Concomitant]
     Active Substance: ALPRAZOLAM
  2. INTRON A [Suspect]
     Active Substance: INTERFERON ALFA-2B
     Dosage: 0.5 ML, TID
     Route: 058
     Dates: start: 2017
  3. IMIQUIMOD. [Concomitant]
     Active Substance: IMIQUIMOD
  4. INTRON A [Suspect]
     Active Substance: INTERFERON ALFA-2B
     Indication: PRODUCT USED FOR UNKNOWN INDICATION
     Dosage: 1 ML, TID
     Dates: start: 20171109, end: 2017

REACTIONS (1)
  - Drug dose omission [Unknown]

NARRATIVE: CASE EVENT DATE: 2017
